FAERS Safety Report 18119228 (Version 2)
Quarter: 2020Q3

REPORT INFORMATION
  Report Type: Report from Study
  Country: CA (occurrence: CA)
  Receive Date: 20200806
  Receipt Date: 20200929
  Transmission Date: 20201103
  Serious: Yes (Other)
  Sender: FDA-Public Use
  Company Number: CA-JNJFOC-20180136205

PATIENT
  Age: 56 Year
  Sex: Male
  Weight: 107 kg

DRUGS (3)
  1. REMICADE [Suspect]
     Active Substance: INFLIXIMAB
     Route: 042
  2. REMICADE [Suspect]
     Active Substance: INFLIXIMAB
     Indication: ANKYLOSING SPONDYLITIS
     Dosage: 300 MG, PATIENT RECEIVED 102ND INFUSION OF 300MG DOSE ON 15?SEP?2020
     Route: 042
     Dates: start: 20060717
  3. REMICADE [Suspect]
     Active Substance: INFLIXIMAB
     Route: 042
     Dates: start: 20120531

REACTIONS (6)
  - Metastases to liver [Recovering/Resolving]
  - Off label use [Unknown]
  - Colorectal cancer metastatic [Recovering/Resolving]
  - Tooth extraction [Recovered/Resolved]
  - Incorrect dose administered [Unknown]
  - Metastases to lung [Recovering/Resolving]

NARRATIVE: CASE EVENT DATE: 20120502
